FAERS Safety Report 9675018 (Version 2)
Quarter: 2013Q4

REPORT INFORMATION
  Report Type: Spontaneous
  Country: US (occurrence: None)
  Receive Date: 20131105
  Receipt Date: 20131106
  Transmission Date: 20140711
  Serious: Yes (Other)
  Sender: FDA-Public Use
  Company Number: A1045329A

PATIENT
  Age: 87 Year
  Sex: Female

DRUGS (2)
  1. SODIUM FLUORIDE + POTASSIUM NITRATE [Suspect]
     Indication: SENSITIVITY OF TEETH
     Dosage: DENTAL
     Route: 004
     Dates: start: 20130911
  2. LISINOPRIL [Suspect]
     Indication: BLOOD PRESSURE

REACTIONS (7)
  - Oral discomfort [None]
  - Lip swelling [None]
  - Swelling [None]
  - Oedema mouth [None]
  - Hypersensitivity [None]
  - Fatigue [None]
  - Somnolence [None]
